FAERS Safety Report 7503378-5 (Version None)
Quarter: 2011Q2

REPORT INFORMATION
  Report Type: 
  Country: None (occurrence: None)
  Receive Date: 20110525
  Receipt Date: 20110519
  Transmission Date: 20111010
  Serious: Yes (Hospitalization)
  Sender: FDA-Public Use
  Company Number: A0920765B

PATIENT
  Age: 62 Year
  Sex: Male
  Weight: 79.7 kg

DRUGS (22)
  1. LOPERAMIDE [Concomitant]
  2. OXYCODONE HCL [Concomitant]
  3. SENNOSIDES [Concomitant]
  4. SIMVASTATIN [Concomitant]
  5. PAZOPANIB [Suspect]
     Indication: BLADDER CANCER
     Dosage: 400MG PER DAY
     Route: 048
     Dates: start: 20110113
  6. EVEROLIMUS [Suspect]
     Indication: BLADDER CANCER
     Dosage: 25MG ALTERNATE DAYS
     Route: 048
     Dates: start: 20110113
  7. FLUOXETINE [Concomitant]
  8. ATIVAN [Concomitant]
  9. DOCUSATE [Concomitant]
  10. OXYCONTIN [Concomitant]
  11. TAMSULOSIN HCL [Concomitant]
  12. GABAPENTIN [Concomitant]
  13. METFORMIN HCL [Concomitant]
  14. METOPROLOL TARTRATE [Concomitant]
  15. VITAMIN D CALCIUM [Concomitant]
  16. COMPAZINE [Concomitant]
  17. DALTEPARIN SODIUM [Concomitant]
     Dates: start: 20110505
  18. MIRALAX [Concomitant]
  19. IBUPROFEN [Concomitant]
  20. MAGNESIUM OXIDE [Concomitant]
  21. ASPIRIN [Concomitant]
  22. NEUTRAPHOS [Concomitant]

REACTIONS (2)
  - DEEP VEIN THROMBOSIS [None]
  - PNEUMOTHORAX [None]
